FAERS Safety Report 16413132 (Version 1)
Quarter: 2019Q2

REPORT INFORMATION
  Report Type: Spontaneous
  Country: US (occurrence: US)
  Receive Date: 20190611
  Receipt Date: 20190611
  Transmission Date: 20190711
  Serious: Yes (Hospitalization)
  Sender: FDA-Public Use
  Company Number: US-ROCHE-2334087

PATIENT
  Sex: Male

DRUGS (3)
  1. ESBRIET [Suspect]
     Active Substance: PIRFENIDONE
     Dosage: DAY 15 ONWARDS: 3 TABLETS WITH MEALS
     Route: 048
  2. ESBRIET [Suspect]
     Active Substance: PIRFENIDONE
     Indication: IDIOPATHIC PULMONARY FIBROSIS
     Dosage: DAY 1-7: 1 TABLET
     Route: 048
     Dates: start: 20190606
  3. ESBRIET [Suspect]
     Active Substance: PIRFENIDONE
     Dosage: DAY 8-14: 2 TAB
     Route: 048

REACTIONS (2)
  - Pneumonia [Unknown]
  - Ill-defined disorder [Unknown]
